FAERS Safety Report 8882829 (Version 1)
Quarter: 2012Q4

REPORT INFORMATION
  Report Type: 
  Country: US (occurrence: US)
  Receive Date: 20121105
  Receipt Date: 20121105
  Transmission Date: 20130627
  Serious: No
  Sender: FDA-Public Use
  Company Number: US-BAYER-2012-114948

PATIENT
  Age: 29 Year
  Sex: Male

DRUGS (1)
  1. MAGNEVIST [Suspect]
     Indication: MRI BRAIN
     Dosage: 14 ml, UNK
     Route: 042
     Dates: start: 20121101

REACTIONS (1)
  - Nausea [None]
